FAERS Safety Report 24933262 (Version 1)
Quarter: 2025Q1

REPORT INFORMATION
  Report Type: Spontaneous
  Country: GB (occurrence: GB)
  Receive Date: 20250206
  Receipt Date: 20250206
  Transmission Date: 20250409
  Serious: No
  Sender: ALKEM
  Company Number: None

PATIENT
  Age: 76 Year
  Sex: Male
  Weight: 105 kg

DRUGS (8)
  1. GABAPENTIN [Suspect]
     Active Substance: GABAPENTIN
     Indication: Ill-defined disorder
     Route: 065
     Dates: start: 20230802
  2. CO-DYDRAMOL [Concomitant]
     Active Substance: ACETAMINOPHEN\DIHYDROCODEINE
     Indication: Ill-defined disorder
     Dosage: UNK, QID (TAKE 1 OR 2 UP TO 4 TIMES/DAY FOR PAIN)
     Route: 065
     Dates: start: 20220818
  3. CO-DYDRAMOL [Concomitant]
     Active Substance: ACETAMINOPHEN\DIHYDROCODEINE
     Indication: Pain
  4. GABAPENTIN [Concomitant]
     Active Substance: GABAPENTIN
     Indication: Ill-defined disorder
     Dosage: 1 DOSAGE FORM, TID (FOR 1 WEEK)
     Route: 065
     Dates: start: 20230627, end: 20230727
  5. LOPERAMIDE [Concomitant]
     Active Substance: LOPERAMIDE
     Indication: Ill-defined disorder
     Route: 065
     Dates: start: 20220818
  6. LOSARTAN [Concomitant]
     Active Substance: LOSARTAN
     Indication: Ill-defined disorder
     Dosage: UNK, OD (TAKE ONE DAILY)
     Route: 065
     Dates: start: 20220818
  7. CARBOXYMETHYLCELLULOSE SODIUM\GLYCERIN [Concomitant]
     Active Substance: CARBOXYMETHYLCELLULOSE SODIUM\GLYCERIN
     Indication: Ill-defined disorder
     Dosage: UNK, TID (APPLY THREE TIMES DAILY TO BOTH EYES (6 MONTH ...)
     Route: 065
     Dates: start: 20220818
  8. TAMSULOSIN HYDROCHLORIDE [Concomitant]
     Active Substance: TAMSULOSIN HYDROCHLORIDE
     Indication: Ill-defined disorder
     Dosage: UNK, OD (TAKE ONE DAILY)
     Route: 065
     Dates: start: 20220818

REACTIONS (2)
  - Dysphagia [Recovered/Resolved]
  - Sedation [Recovered/Resolved]

NARRATIVE: CASE EVENT DATE: 20230802
